FAERS Safety Report 6233908-5 (Version None)
Quarter: 2009Q2

REPORT INFORMATION
  Report Type: 
  Country: None (occurrence: None)
  Receive Date: 20090618
  Receipt Date: 20090608
  Transmission Date: 20091009
  Serious: Yes (Hospitalization, Other)
  Sender: FDA-Public Use
  Company Number: PHHY2009FR10427

PATIENT
  Sex: Female
  Weight: 58 kg

DRUGS (3)
  1. EXELON [Suspect]
     Indication: DEMENTIA ALZHEIMER'S TYPE
     Dosage: 4.6 MG
     Route: 062
  2. EXELON [Suspect]
     Dosage: 9.5 MG
     Route: 062
     Dates: start: 20090126, end: 20090208
  3. KARDEGIC [Concomitant]
     Dosage: 75 MG, QD
     Route: 048

REACTIONS (6)
  - BRADYCARDIA [None]
  - FALL [None]
  - GASTROINTESTINAL DISORDER [None]
  - MALAISE [None]
  - VOMITING [None]
  - WOUND [None]
